FAERS Safety Report 20359243 (Version 3)
Quarter: 2022Q1

REPORT INFORMATION
  Report Type: Report from Study
  Country: US (occurrence: US)
  Receive Date: 20220121
  Receipt Date: 20220209
  Transmission Date: 20220423
  Serious: No
  Sender: FDA-Public Use
  Company Number: US-BIOVITRUM-2021US12973

PATIENT
  Sex: Female

DRUGS (2)
  1. DOPTELET [Suspect]
     Active Substance: AVATROMBOPAG MALEATE
     Indication: Thrombocytopenia
     Route: 048
     Dates: start: 20211217
  2. DOPTELET [Suspect]
     Active Substance: AVATROMBOPAG MALEATE
     Route: 048
     Dates: start: 20211217

REACTIONS (8)
  - Ear pain [Unknown]
  - Constipation [Unknown]
  - Limb discomfort [Unknown]
  - Platelet count decreased [Unknown]
  - Hepatic enzyme increased [Recovering/Resolving]
  - Headache [Unknown]
  - Nausea [Unknown]
  - Abdominal distension [Unknown]
